FAERS Safety Report 10238505 (Version 1)
Quarter: 2014Q2

REPORT INFORMATION
  Report Type: Spontaneous
  Country: US (occurrence: None)
  Receive Date: 20140613
  Receipt Date: 20140613
  Transmission Date: 20141212
  Serious: Yes (Other)
  Sender: FDA-Public Use
  Company Number: None

PATIENT
  Age: 27 Year
  Sex: Female
  Weight: 87.09 kg

DRUGS (1)
  1. NORGESTIMATE - EH ESTRADIOL 0.25-35 MG MOG [Suspect]
     Indication: CONTRACEPTION
     Route: 048
     Dates: start: 201405

REACTIONS (3)
  - Abdominal distension [None]
  - Mood swings [None]
  - Menstruation irregular [None]
